FAERS Safety Report 6408916-1 (Version None)
Quarter: 2009Q4

REPORT INFORMATION
  Report Type: 
  Country: None (occurrence: None)
  Receive Date: 20091019
  Receipt Date: 20091016
  Transmission Date: 20100525
  Serious: Yes (Other)
  Sender: FDA-Public Use
  Company Number: 003309

PATIENT
  Age: 87 Year
  Sex: Male

DRUGS (8)
  1. MACUGEN [Suspect]
     Indication: CHOROIDAL NEOVASCULARISATION
     Dosage: 0.3MG, INTRAOCULAR
     Route: 031
     Dates: start: 20090109, end: 20090223
  2. MACUGEN [Suspect]
     Indication: MACULAR DEGENERATION
     Dosage: 0.3MG, INTRAOCULAR
     Route: 031
     Dates: start: 20090109, end: 20090223
  3. POVIDONE IODINE [Concomitant]
  4. CHLORHEXIDINE GLUCONATE [Concomitant]
  5. BENOXIL (OXYBUPROCAINE) [Concomitant]
  6. XYLOCAINE [Concomitant]
  7. LEVOFLOXACIN [Concomitant]
  8. LEVOFLOXACIN [Concomitant]

REACTIONS (1)
  - RETINAL DETACHMENT [None]
